FAERS Safety Report 9746799 (Version 2)
Quarter: 2013Q4

REPORT INFORMATION
  Report Type: Spontaneous
  Country: US (occurrence: US)
  Receive Date: 20131211
  Receipt Date: 20131211
  Transmission Date: 20140711
  Serious: Yes (Hospitalization, Other)
  Sender: FDA-Public Use
  Company Number: PHHY2013US125964

PATIENT
  Sex: Male

DRUGS (7)
  1. LIORESAL INTRATECAL [Suspect]
     Indication: MUSCLE SPASTICITY
     Dosage: 370 UG, DAILY
     Route: 037
  2. BACLOFEN [Suspect]
     Dosage: UNK UKN, UNK
     Route: 048
  3. TRILEPTAL [Suspect]
     Dosage: UNK UKN, UNK
     Route: 048
  4. PREVACID [Suspect]
     Dosage: UNK UKN, UNK
     Route: 048
  5. CLONIDINE [Suspect]
     Dosage: UNK UKN, UNK
     Route: 048
  6. MIRALAX [Suspect]
     Dosage: UNK UKN, UNK
     Route: 048
  7. KLONOPIN [Suspect]
     Dosage: UNK UKN, UNK
     Route: 048

REACTIONS (2)
  - Incorrect route of drug administration [Unknown]
  - Somnolence [Recovered/Resolved]
